FAERS Safety Report 6161412-1 (Version None)
Quarter: 2009Q2

REPORT INFORMATION
  Report Type: 
  Country: None (occurrence: None)
  Receive Date: 20090417
  Receipt Date: 20090417
  Transmission Date: 20091009
  Serious: Yes (Hospitalization)
  Sender: FDA-Public Use
  Company Number: None

PATIENT
  Age: 43 Year
  Sex: Female

DRUGS (1)
  1. MEGESTROL ACETATE [Suspect]
     Indication: DYSFUNCTIONAL UTERINE BLEEDING
     Dosage: 20MG BID PO
     Route: 048
     Dates: start: 20090205, end: 20090331

REACTIONS (1)
  - BLOOD GLUCOSE INCREASED [None]
